FAERS Safety Report 7430440-8 (Version None)
Quarter: 2011Q2

REPORT INFORMATION
  Report Type: 
  Country: None (occurrence: None)
  Receive Date: 20110421
  Receipt Date: 20100329
  Transmission Date: 20111010
  Serious: No
  Sender: FDA-Public Use
  Company Number: US-ASTRAZENECA-2010SE13762

PATIENT
  Sex: Female

DRUGS (2)
  1. TOPROL-XL [Suspect]
     Route: 048
  2. MICARDIS HCT [Suspect]
     Dosage: 80 MG/25MG
     Route: 065

REACTIONS (3)
  - INTERVERTEBRAL DISC PROTRUSION [None]
  - PARKINSON'S DISEASE [None]
  - ARTHRITIS [None]
